FAERS Safety Report 5100742-9 (Version None)
Quarter: 2006Q3

REPORT INFORMATION
  Report Type: 
  Country: None (occurrence: None)
  Receive Date: 20060906
  Receipt Date: 20060825
  Transmission Date: 20061208
  Serious: Yes (Other)
  Sender: FDA-Public Use
  Company Number: US-2006-019341

PATIENT

DRUGS (1)
  1. ULTRAVIST 300 [Suspect]

REACTIONS (5)
  - CARDIO-RESPIRATORY ARREST [None]
  - RESPIRATORY DISTRESS [None]
  - SWELLING FACE [None]
  - SWOLLEN TONGUE [None]
  - URTICARIA [None]
